FAERS Safety Report 15538235 (Version 1)
Quarter: 2018Q4

REPORT INFORMATION
  Report Type: Spontaneous
  Country: CN (occurrence: CN)
  Receive Date: 20181022
  Receipt Date: 20181022
  Transmission Date: 20190205
  Serious: Yes (Other)
  Sender: FDA-Public Use
  Company Number: CN-PFIZER INC-2018411964

PATIENT
  Age: 38 Year
  Sex: Female
  Weight: 49.3 kg

DRUGS (1)
  1. CYTOSAR [Suspect]
     Active Substance: CYTARABINE
     Indication: ACUTE MYELOID LEUKAEMIA
     Dosage: 2000 MG, 1X/DAY
     Route: 041
     Dates: start: 20180719, end: 20180724

REACTIONS (4)
  - Hypoalbuminaemia [Unknown]
  - Rash generalised [Recovering/Resolving]
  - Pruritus [Recovering/Resolving]
  - Blood pressure decreased [Unknown]

NARRATIVE: CASE EVENT DATE: 20180722
